FAERS Safety Report 25671605 (Version 2)
Quarter: 2025Q3

REPORT INFORMATION
  Report Type: Report from Study
  Country: CN (occurrence: CN)
  Receive Date: 20250812
  Receipt Date: 20250830
  Transmission Date: 20251020
  Serious: Yes (Death)
  Sender: TEVA
  Company Number: CN-TEVA-VS-3362233

PATIENT

DRUGS (3)
  1. BENDAMUSTINE [Suspect]
     Active Substance: BENDAMUSTINE
     Indication: Waldenstrom^s macroglobulinaemia
     Route: 042
  2. RITUXIMAB [Suspect]
     Active Substance: RITUXIMAB
     Indication: Waldenstrom^s macroglobulinaemia
     Route: 042
  3. ZANUBRUTINIB [Suspect]
     Active Substance: ZANUBRUTINIB
     Indication: Waldenstrom^s macroglobulinaemia
     Dosage: BID PER DAY, UP TO 12 MONTHS
     Route: 048

REACTIONS (1)
  - Cerebral haemorrhage [Fatal]
